FAERS Safety Report 19134861 (Version 1)
Quarter: 2021Q2

REPORT INFORMATION
  Report Type: Spontaneous
  Country: US (occurrence: US)
  Receive Date: 20210414
  Receipt Date: 20210414
  Transmission Date: 20210717
  Serious: No
  Sender: FDA-Public Use
  Company Number: NVSC2021US079145

PATIENT
  Age: 51 Year
  Sex: Female
  Weight: 54.4 kg

DRUGS (1)
  1. COMBIPATCH [Suspect]
     Active Substance: ESTRADIOL\NORETHINDRONE ACETATE
     Indication: MENOPAUSE
     Dosage: 50/140 MG
     Route: 062
     Dates: start: 20210326

REACTIONS (2)
  - Product adhesion issue [Not Recovered/Not Resolved]
  - Product residue present [Not Recovered/Not Resolved]
